FAERS Safety Report 15713913 (Version 3)
Quarter: 2019Q2

REPORT INFORMATION
  Report Type: Spontaneous
  Country: JP (occurrence: JP)
  Receive Date: 20181212
  Receipt Date: 20190530
  Transmission Date: 20190711
  Serious: Yes (Other)
  Sender: FDA-Public Use
  Company Number: JP-PFIZER INC-2018502594

PATIENT
  Age: 64 Year
  Sex: Female

DRUGS (4)
  1. ATORVASTATIN [ATORVASTATIN CALCIUM] [Concomitant]
     Active Substance: ATORVASTATIN CALCIUM
     Indication: HYPERLIPIDAEMIA
     Dosage: 1 TABLET, 1X/DAY
     Route: 048
     Dates: start: 20150311
  2. LYRICA [Suspect]
     Active Substance: PREGABALIN
     Indication: NEURALGIA
     Dosage: 1 TABLET, 2X/DAY
     Route: 048
     Dates: start: 20151216
  3. AMLODIPINE BESILATE/VALSARTAN [Concomitant]
     Indication: HYPERTENSION
     Dosage: 1 TABLET, 1X/DAY
     Route: 048
     Dates: start: 20150311
  4. OMEPRAZOLE. [Concomitant]
     Active Substance: OMEPRAZOLE
     Indication: GASTROOESOPHAGEAL REFLUX DISEASE
     Dosage: 1 TABLET, 1X/DAY
     Route: 048
     Dates: start: 20150311

REACTIONS (4)
  - Fall [Unknown]
  - Normal tension glaucoma [Unknown]
  - Disease progression [Unknown]
  - Cataract [Unknown]

NARRATIVE: CASE EVENT DATE: 2018
